FAERS Safety Report 16944973 (Version 1)
Quarter: 2019Q4

REPORT INFORMATION
  Report Type: Spontaneous
  Country: DE (occurrence: DE)
  Receive Date: 20191022
  Receipt Date: 20191022
  Transmission Date: 20200122
  Serious: Yes (Hospitalization)
  Sender: FDA-Public Use
  Company Number: DE-AKCEA THERAPEUTICS-2019IS001243

PATIENT

DRUGS (1)
  1. TEGSEDI [Suspect]
     Active Substance: INOTERSEN SODIUM
     Indication: HEREDITARY NEUROPATHIC AMYLOIDOSIS
     Dosage: UNK
     Route: 065
     Dates: start: 20190104

REACTIONS (3)
  - Intentional dose omission [Unknown]
  - Off label use [Unknown]
  - Knee operation [Unknown]

NARRATIVE: CASE EVENT DATE: 2019
